FAERS Safety Report 23951588 (Version 2)
Quarter: 2024Q2

REPORT INFORMATION
  Report Type: Spontaneous
  Country: US (occurrence: US)
  Receive Date: 20240607
  Receipt Date: 20240619
  Transmission Date: 20240716
  Serious: No
  Sender: FDA-Public Use
  Company Number: US-PFIZER INC-US-GBT-019730

PATIENT
  Age: 13 Year
  Sex: Female
  Weight: 53.98 kg

DRUGS (4)
  1. OXBRYTA [Suspect]
     Active Substance: VOXELOTOR
     Indication: Sickle cell disease
     Dosage: 1500 MG, 1X/DAY (500 MG, 3 TABLETS ONCE DAILY)
     Route: 048
     Dates: start: 202301
  2. OXBRYTA [Suspect]
     Active Substance: VOXELOTOR
     Indication: Sickle cell anaemia
     Dosage: 1500 MG, 1X/DAY (500 MG, 3 TABLETS ONCE DAILY)
     Route: 048
     Dates: start: 20230831, end: 20240220
  3. OXBRYTA [Suspect]
     Active Substance: VOXELOTOR
     Dosage: 1500 MG, 1X/DAY (500 MG, 3 TABLETS ONCE DAILY)
     Route: 048
     Dates: start: 20240228, end: 20240228
  4. HYDROXYUREA [Concomitant]
     Active Substance: HYDROXYUREA
     Dosage: 1 DF, 2X/DAY (ONE IN THE MORNING AND ONE IN THE EVENING)

REACTIONS (4)
  - Dysphagia [Unknown]
  - Product use complaint [Unknown]
  - Product size issue [Unknown]
  - Product dose omission issue [Unknown]

NARRATIVE: CASE EVENT DATE: 20230101
